FAERS Safety Report 26198171 (Version 1)
Quarter: 2025Q4

REPORT INFORMATION
  Report Type: Spontaneous
  Country: EU (occurrence: EU)
  Receive Date: 20251224
  Receipt Date: 20251224
  Transmission Date: 20260117
  Serious: Yes (Other)
  Sender: SANDOZ
  Company Number: EU-AMGEN-PRTSP2025236721

PATIENT
  Age: 16 Year
  Sex: Female

DRUGS (4)
  1. ADALIMUMAB [Suspect]
     Active Substance: ADALIMUMAB
     Indication: Uveitis
     Dosage: 40 MG, Q2W, (40 MILLIGRAM, Q2WK)
  2. ADALIMUMAB [Suspect]
     Active Substance: ADALIMUMAB
     Indication: Scleritis
  3. ADALIMUMAB [Suspect]
     Active Substance: ADALIMUMAB
  4. METHOTREXATE [Concomitant]
     Active Substance: METHOTREXATE
     Indication: Scleritis
     Dosage: 10 MG/M2, QW, (10 MILLIGRAM/SQ.METER, QWK)

REACTIONS (7)
  - Macular oedema [Recovering/Resolving]
  - Retinal dystrophy [Recovered/Resolved]
  - Splenomegaly [Recovered/Resolved]
  - Anhidrosis [Recovered/Resolved]
  - Headache [Recovered/Resolved]
  - Drug ineffective for unapproved indication [Unknown]
  - Off label use [Unknown]
